FAERS Safety Report 5829071-2 (Version None)
Quarter: 2008Q3

REPORT INFORMATION
  Report Type: 
  Country: None (occurrence: None)
  Receive Date: 20080731
  Receipt Date: 20080725
  Transmission Date: 20090109
  Serious: Yes (Death, Life-Threatening, Hospitalization, Other)
  Sender: FDA-Public Use
  Company Number: BE-GENENTECH-265266

PATIENT
  Sex: Female

DRUGS (2)
  1. TRASTUZUMAB [Suspect]
     Indication: BREAST CANCER METASTATIC
     Dosage: 432 MG, Q3W
     Dates: start: 20080610, end: 20080610
  2. DOCETAXEL [Suspect]
     Indication: BREAST CANCER METASTATIC
     Dosage: 113 MG, Q3W
     Route: 042
     Dates: start: 20080611, end: 20080611

REACTIONS (2)
  - MULTI-ORGAN FAILURE [None]
  - RESPIRATORY DISTRESS [None]
